FAERS Safety Report 9664866 (Version 2)
Quarter: 2013Q4

REPORT INFORMATION
  Report Type: Spontaneous
  Country: US (occurrence: US)
  Receive Date: 20131101
  Receipt Date: 20131216
  Transmission Date: 20140711
  Serious: Yes (Hospitalization)
  Sender: FDA-Public Use
  Company Number: US-GLAXOSMITHKLINE-A1047792A

PATIENT
  Sex: Female

DRUGS (2)
  1. WELLBUTRIN [Suspect]
     Indication: DEPRESSION
     Route: 065
  2. UNKNOWN MEDICATION [Concomitant]
     Indication: OSTEOPOROSIS
     Route: 042

REACTIONS (8)
  - Spinal fracture [Recovered/Resolved]
  - Transfusion [Recovered/Resolved]
  - Benign breast neoplasm [Not Recovered/Not Resolved]
  - Weight decreased [Recovered/Resolved]
  - Dysgeusia [Recovered/Resolved]
  - Feeling abnormal [Recovered/Resolved]
  - Decreased appetite [Recovered/Resolved]
  - Neuralgia [Not Recovered/Not Resolved]
